FAERS Safety Report 8197818-9 (Version None)
Quarter: 2012Q1

REPORT INFORMATION
  Report Type: 
  Country: None (occurrence: None)
  Receive Date: 20120309
  Receipt Date: 20120305
  Transmission Date: 20120608
  Serious: Yes (Hospitalization)
  Sender: FDA-Public Use
  Company Number: NO-ABBOTT-10P-122-0691795-00

PATIENT
  Age: 60 Year
  Sex: Female

DRUGS (1)
  1. HUMIRA [Suspect]
     Indication: PSORIATIC ARTHROPATHY
     Dosage: 1ST DOSE 80MG, THEN 40MG/ML EOW
     Dates: start: 20090101, end: 20101201

REACTIONS (3)
  - PERIODONTITIS [None]
  - LOOSE TOOTH [None]
  - CEREBROVASCULAR ACCIDENT [None]
